FAERS Safety Report 4366463-5 (Version None)
Quarter: 2004Q2

REPORT INFORMATION
  Report Type: 
  Country: None (occurrence: None)
  Receive Date: 20040527
  Receipt Date: 20040407
  Transmission Date: 20050107
  Serious: No
  Sender: FDA-Public Use
  Company Number: US-BRISTOL-MYERS SQUIBB COMPANY-12554226

PATIENT
  Age: 61 Year
  Sex: Female
  Weight: 72 kg

DRUGS (11)
  1. ERBITUX [Suspect]
     Indication: COLON CANCER
     Route: 042
     Dates: start: 20040329, end: 20040329
  2. BENADRYL [Concomitant]
     Indication: PREMEDICATION
     Dosage: ADMINISTERED BEFORE EACH CETUXIMAB ON 22-MAR-04, 06-APR-2004.
     Route: 042
     Dates: start: 20040329, end: 20040329
  3. DECADRON [Concomitant]
     Indication: PREMEDICATION
     Dosage: ADMINISTERED BEFORE EACH DOSE OF CETUXIMAB ON 22-MAR-2004 AND 06-APR-2004.
     Route: 042
     Dates: start: 20040329, end: 20040329
  4. TAGAMET [Concomitant]
     Indication: PREMEDICATION
     Dosage: ADMINISTERED BEFORE EACH CETUXIMAB ON 22-MAR-2004 AND 06-APR-2004.
     Route: 042
     Dates: start: 20040329, end: 20040329
  5. ANZEMET [Concomitant]
     Indication: PREMEDICATION
     Dosage: ADMINISTERED BEFORE EACH DOSE OF CETUXIMAB ON 22-MAR-2004 AND 06-APR-2004.
     Route: 042
     Dates: start: 20040329, end: 20040329
  6. TYLENOL [Concomitant]
     Indication: PREMEDICATION
     Dosage: ADMINISTERED BEFORE EACH DOSE OF CETUXIMAB ON 22-MAR-2004 AND 06-APR-2004.
     Route: 048
     Dates: start: 20040329, end: 20040329
  7. HYDROCHLOROTHIAZIDE [Concomitant]
  8. PLENDIL [Concomitant]
  9. POTASSIUM CHLORIDE [Concomitant]
  10. MORPHINE ELIXIR [Concomitant]
  11. DURAGESIC [Concomitant]

REACTIONS (1)
  - RASH [None]
